FAERS Safety Report 4565992-9 (Version None)
Quarter: 2005Q1

REPORT INFORMATION
  Report Type: 
  Country: None (occurrence: None)
  Receive Date: 20050128
  Receipt Date: 20050112
  Transmission Date: 20050727
  Serious: Yes (Death, Hospitalization, Other)
  Sender: FDA-Public Use
  Company Number: NL-SHR-03-016333

PATIENT
  Age: 16 Year
  Sex: Female

DRUGS (2)
  1. YASMIN [Suspect]
     Indication: ORAL CONTRACEPTION
     Dosage: 1 TAB (S), 21 D/28D, ORAL
     Route: 048
     Dates: start: 20030428, end: 20030922
  2. FURABID (NITROFURANTOIN) [Suspect]

REACTIONS (5)
  - BRAIN DEATH [None]
  - CIRCULATORY COLLAPSE [None]
  - GASTROINTESTINAL HAEMORRHAGE [None]
  - MYOCARDIAL INFARCTION [None]
  - PULMONARY EMBOLISM [None]
